FAERS Safety Report 9467559 (Version 1)
Quarter: 2013Q3

REPORT INFORMATION
  Report Type: Spontaneous
  Country: JP (occurrence: JP)
  Receive Date: 20130821
  Receipt Date: 20130821
  Transmission Date: 20140515
  Serious: Yes (Hospitalization)
  Sender: FDA-Public Use
  Company Number: JP-AMGEN-JPNSP2013058136

PATIENT
  Age: 75 Year
  Sex: Female

DRUGS (2)
  1. VECTIBIX [Suspect]
     Indication: COLORECTAL CANCER RECURRENT
     Dosage: UNK UNK, Q2WK
     Route: 041
     Dates: start: 20130729
  2. CAMPTO [Concomitant]
     Indication: COLORECTAL CANCER RECURRENT
     Dosage: UNK
     Route: 041

REACTIONS (2)
  - Gastrointestinal haemorrhage [Unknown]
  - Anal ulcer [Unknown]
